FAERS Safety Report 21461482 (Version 2)
Quarter: 2022Q4

REPORT INFORMATION
  Report Type: Report from Study
  Country: US (occurrence: US)
  Receive Date: 20221015
  Receipt Date: 20221029
  Transmission Date: 20230113
  Serious: No
  Sender: FDA-Public Use
  Company Number: US-ABBVIE-4142954

PATIENT
  Sex: Female

DRUGS (1)
  1. IMBRUVICA [Suspect]
     Active Substance: IBRUTINIB
     Indication: Chronic lymphocytic leukaemia
     Route: 048
     Dates: start: 202002

REACTIONS (3)
  - Melaena [Unknown]
  - Dry eye [Not Recovered/Not Resolved]
  - Conjunctival cyst [Not Recovered/Not Resolved]

NARRATIVE: CASE EVENT DATE: 20220101
